FAERS Safety Report 12896981 (Version 3)
Quarter: 2017Q1

REPORT INFORMATION
  Report Type: Spontaneous
  Country: US (occurrence: US)
  Receive Date: 20161031
  Receipt Date: 20170217
  Transmission Date: 20170428
  Serious: Yes (Other)
  Sender: FDA-Public Use
  Company Number: US-PFIZER INC-2016504564

PATIENT
  Age: 67 Year
  Sex: Male
  Weight: 77 kg

DRUGS (27)
  1. HCTZ [Concomitant]
     Active Substance: HYDROCHLOROTHIAZIDE
     Indication: BLOOD PRESSURE ABNORMAL
     Dosage: 12.5 MG, 1X/DAY
  2. OXYCODONE [Concomitant]
     Active Substance: OXYCODONE
     Indication: CERVICAL SPINAL STENOSIS
  3. OXYCODONE [Concomitant]
     Active Substance: OXYCODONE
     Indication: PAIN
  4. OXYCODONE [Concomitant]
     Active Substance: OXYCODONE
     Indication: BONE PAIN
  5. MORPHINE SULFATE. [Concomitant]
     Active Substance: MORPHINE SULFATE
     Indication: CONDITION AGGRAVATED
  6. ASPIRIN. [Concomitant]
     Active Substance: ASPIRIN
     Indication: CARDIOVASCULAR EVENT PROPHYLAXIS
     Dosage: 83 MG, 3X/DAY
  7. OMEGA 3 [Concomitant]
     Active Substance: OMEGA-3 FATTY ACIDS
     Indication: CARDIOVASCULAR EVENT PROPHYLAXIS
     Dosage: 1200 MG, UNK (TAKES THREE, FOUR TIMES A DAY)
  8. GLUCOSAMINE SULFATE [Concomitant]
     Active Substance: GLUCOSAMINE SULFATE
     Indication: BONE PAIN
     Dosage: 500 MG, 4X/DAY
  9. VITAMIN D3 [Concomitant]
     Active Substance: CHOLECALCIFEROL
     Indication: VITAMIN SUPPLEMENTATION
     Dosage: 2000 IU, 1X/DAY
  10. TERAZOSIN [Concomitant]
     Active Substance: TERAZOSIN\TERAZOSIN HYDROCHLORIDE
     Dosage: UNK
  11. AMITRIPTYLIN [Concomitant]
     Active Substance: AMITRIPTYLINE
     Dosage: 25 MG, UNK
     Dates: start: 201701
  12. BOSWELLIA COMPLEX [Concomitant]
     Indication: ARTHRITIS
     Dosage: 3000 MG, DAILY
  13. OXYCODONE [Concomitant]
     Active Substance: OXYCODONE
     Indication: SCIATIC NERVE NEUROPATHY
  14. MORPHINE SULFATE. [Concomitant]
     Active Substance: MORPHINE SULFATE
     Indication: PAIN
     Dosage: 30 MG, 3X/DAY
  15. LISINOPRIL. [Concomitant]
     Active Substance: LISINOPRIL
     Indication: BLOOD PRESSURE ABNORMAL
     Dosage: 10 MG, 1X/DAY
  16. TIZANIDINE. [Concomitant]
     Active Substance: TIZANIDINE
     Indication: MUSCLE SPASMS
  17. KRILL OIL [Concomitant]
     Active Substance: DIETARY SUPPLEMENT
     Indication: CARDIOVASCULAR EVENT PROPHYLAXIS
     Dosage: 300 MG, 4X/DAY
  18. SAW PALMETTO [Concomitant]
     Active Substance: SAW PALMETTO
     Dosage: 550 MG, 4X/DAY
  19. OXYCODONE [Concomitant]
     Active Substance: OXYCODONE
     Indication: SPONDYLOLISTHESIS
  20. MORPHINE SULFATE. [Concomitant]
     Active Substance: MORPHINE SULFATE
     Indication: BONE PAIN
     Dosage: 15 MG, 4X/DAY
  21. NICOTROL [Suspect]
     Active Substance: NICOTINE
     Indication: SMOKING CESSATION THERAPY
     Dosage: UNK UNK, DAILY (USE 2 TO 3 CARTRIDGES)
     Route: 055
     Dates: start: 201602
  22. NICOTROL [Suspect]
     Active Substance: NICOTINE
     Indication: SMOKING CESSATION THERAPY
     Dosage: UNK (1 VIAL PER 5-6 DAYS AVERAGE)
     Route: 045
     Dates: start: 201602
  23. NICOTROL [Suspect]
     Active Substance: NICOTINE
     Dosage: UNK (10-20 SQUIRTS DAY)
     Route: 045
  24. TIZANIDINE. [Concomitant]
     Active Substance: TIZANIDINE
     Indication: MUSCLE ATROPHY
     Dosage: 4 MG, 4X/DAY
  25. TIZANIDINE. [Concomitant]
     Active Substance: TIZANIDINE
     Indication: MUSCLE SPASMS
  26. OXYCODONE [Concomitant]
     Active Substance: OXYCODONE
     Indication: ARTHRITIS
     Dosage: 15 MG, 3X/DAY
     Dates: start: 2007
  27. VITAMIN B3 [Concomitant]
     Active Substance: NIACIN
     Dosage: 400 IU, UNK

REACTIONS (7)
  - Diabetes mellitus [Not Recovered/Not Resolved]
  - Condition aggravated [Unknown]
  - Intentional product use issue [Not Recovered/Not Resolved]
  - Bone pain [Unknown]
  - Drug effect incomplete [Not Recovered/Not Resolved]
  - Drug dispensing error [Unknown]
  - Sciatic nerve neuropathy [Unknown]

NARRATIVE: CASE EVENT DATE: 201701
